FAERS Safety Report 18779064 (Version 7)
Quarter: 2025Q2

REPORT INFORMATION
  Report Type: Report from Study
  Country: CZ (occurrence: CZ)
  Receive Date: 20210125
  Receipt Date: 20250604
  Transmission Date: 20250716
  Serious: Yes (Other)
  Sender: AUROBINDO
  Company Number: CZ-TEVA-2020-CZ-1859074

PATIENT
  Age: 43 Year
  Sex: Female

DRUGS (8)
  1. METOPROLOL [Interacting]
     Active Substance: METOPROLOL
     Indication: Prophylaxis
     Route: 048
     Dates: start: 201101, end: 201208
  2. METOPROLOL [Interacting]
     Active Substance: METOPROLOL
     Indication: Migraine
     Dosage: 50 MILLIGRAM, ONCE A DAY
     Route: 048
     Dates: start: 201212
  3. VENLAFAXINE [Interacting]
     Active Substance: VENLAFAXINE HYDROCHLORIDE
     Indication: Migraine
     Dosage: 75 MILLIGRAM, ONCE A DAY
     Route: 065
     Dates: start: 202108
  4. VENLAFAXINE [Interacting]
     Active Substance: VENLAFAXINE HYDROCHLORIDE
     Indication: Prophylaxis
     Dosage: 75 MILLIGRAM, ONCE A DAY
     Route: 065
     Dates: start: 201208
  5. VENLAFAXINE [Interacting]
     Active Substance: VENLAFAXINE HYDROCHLORIDE
     Route: 048
  6. TOPIRAMATE [Suspect]
     Active Substance: TOPIRAMATE
     Indication: Migraine
     Route: 065
  7. VALPROIC ACID [Suspect]
     Active Substance: VALPROIC ACID
     Indication: Migraine
     Route: 065
  8. ACETAMINOPHEN\CAFFEINE\GUAIFENESIN [Concomitant]
     Active Substance: ACETAMINOPHEN\CAFFEINE\GUAIFENESIN
     Indication: Product used for unknown indication
     Route: 065

REACTIONS (14)
  - Drug intolerance [Unknown]
  - Cardiovascular disorder [Recovered/Resolved]
  - Palpitations [Recovered/Resolved]
  - Blood pressure increased [Recovered/Resolved]
  - Depression [Recovered/Resolved]
  - Drug ineffective [Recovered/Resolved]
  - Off label use [Unknown]
  - Asthenia [Unknown]
  - Weight increased [Unknown]
  - Alopecia [Unknown]
  - Migraine [Unknown]
  - Drug interaction [Unknown]
  - Incorrect dose administered [Unknown]
  - Medication error [Unknown]

NARRATIVE: CASE EVENT DATE: 20120101
